FAERS Safety Report 13503610 (Version 1)
Quarter: 2017Q2

REPORT INFORMATION
  Report Type: Spontaneous
  Country: US (occurrence: US)
  Receive Date: 20170502
  Receipt Date: 20170502
  Transmission Date: 20170830
  Serious: Yes (Life-Threatening, Disabling, Other)
  Sender: FDA-Public Use
  Company Number: None

PATIENT
  Age: 49 Year
  Sex: Male
  Weight: 90 kg

DRUGS (4)
  1. MELETONIN [Concomitant]
  2. LOSARTON [Concomitant]
  3. BABY ASPIRIN [Concomitant]
     Active Substance: ASPIRIN
  4. ATORVASTATIN [Suspect]
     Active Substance: ATORVASTATIN
     Indication: ATRIOVENTRICULAR BLOCK
     Dosage: ?          QUANTITY:1 TABLET(S);?AT BEDTIME ORAL
     Route: 048
     Dates: start: 20150831, end: 20170209

REACTIONS (13)
  - Brain injury [None]
  - Amyotrophic lateral sclerosis [None]
  - Diplopia [None]
  - Judgement impaired [None]
  - Disorganised speech [None]
  - Tremor [None]
  - Cognitive disorder [None]
  - Flat affect [None]
  - Disturbance in attention [None]
  - Dementia [None]
  - Hepatic enzyme increased [None]
  - Headache [None]
  - Amnesia [None]

NARRATIVE: CASE EVENT DATE: 20170209
